FAERS Safety Report 13342735 (Version 1)
Quarter: 2017Q1

REPORT INFORMATION
  Report Type: Spontaneous
  Country: US (occurrence: US)
  Receive Date: 20170316
  Receipt Date: 20170316
  Transmission Date: 20170428
  Serious: No
  Sender: FDA-Public Use
  Company Number: US-BAYER-2017-050398

PATIENT
  Age: 53 Year
  Sex: Female
  Weight: 104 kg

DRUGS (1)
  1. CLARITIN-D 24 HOUR [Suspect]
     Active Substance: LORATADINE\PSEUDOEPHEDRINE SULFATE
     Route: 048
     Dates: end: 20170315

REACTIONS (2)
  - Product use issue [Unknown]
  - Product use issue [None]
